FAERS Safety Report 13375615 (Version 5)
Quarter: 2024Q4

REPORT INFORMATION
  Report Type: Spontaneous
  Country: US (occurrence: US)
  Receive Date: 20170328
  Receipt Date: 20241227
  Transmission Date: 20250115
  Serious: Yes (Other)
  Sender: ROCHE
  Company Number: US-MLMSERVICE-20170315-0492878-1

PATIENT
  Sex: Male

DRUGS (6)
  1. MYCOPHENOLATE MOFETIL [Suspect]
     Active Substance: MYCOPHENOLATE MOFETIL
     Indication: Prophylaxis against transplant rejection
     Route: 065
  2. TACROLIMUS [Suspect]
     Active Substance: TACROLIMUS
     Indication: Prophylaxis against transplant rejection
     Dosage: DOSE: TARGET TROUGH DRUG LEVEL OF 6 NG/ML
     Route: 065
  3. TACROLIMUS [Suspect]
     Active Substance: TACROLIMUS
     Dosage: TARGET TROUGH LEVEL OF 4-5 NG/ML
     Route: 065
  4. PREDNISONE [Suspect]
     Active Substance: PREDNISONE
     Indication: Prophylaxis against transplant rejection
     Route: 065
  5. RAPAMYCIN [Concomitant]
     Active Substance: SIROLIMUS
  6. BELATACEPT [Concomitant]
     Active Substance: BELATACEPT

REACTIONS (3)
  - Cytomegalovirus viraemia [Recovered/Resolved]
  - Neurotoxicity [Unknown]
  - Nephropathy toxic [Recovering/Resolving]
